FAERS Safety Report 8369164-1 (Version None)
Quarter: 2012Q1

REPORT INFORMATION
  Report Type: 
  Country: None (occurrence: None)
  Receive Date: 20120323
  Receipt Date: 20111115
  Transmission Date: 20120608
  Serious: Yes (Other)
  Sender: FDA-Public Use
  Company Number: 163-21880-11083255

PATIENT
  Age: 78 Year
  Sex: Female
  Weight: 90.7194 kg

DRUGS (10)
  1. SYMBICORT (SYMBICORT TURBUHALER ^DRACO^) [Concomitant]
  2. ASPIRIN [Concomitant]
  3. ZOMETA [Concomitant]
  4. COMBIVENT [Concomitant]
  5. SINGULAIR [Concomitant]
  6. REVLIMID [Suspect]
     Indication: MULTIPLE MYELOMA
     Dosage: 25 MG, DAILY X 21 7 DAYS OFF, PO
     Route: 048
     Dates: start: 20110411
  7. DIOVAN [Concomitant]
  8. NORVASC [Concomitant]
  9. REVLIMID [Suspect]
  10. CALCIUM CARBONATE [Concomitant]

REACTIONS (4)
  - RASH [None]
  - BLOOD BLISTER [None]
  - HAEMOGLOBIN DECREASED [None]
  - PLATELET COUNT DECREASED [None]
